FAERS Safety Report 16287820 (Version 2)
Quarter: 2021Q1

REPORT INFORMATION
  Report Type: Spontaneous
  Country: US (occurrence: US)
  Receive Date: 20190508
  Receipt Date: 20210218
  Transmission Date: 20210419
  Serious: Yes (Other)
  Sender: FDA-Public Use
  Company Number: US-ASTRAZENECA-2019SE62768

PATIENT
  Age: 44 Year
  Sex: Female
  Weight: 102.1 kg

DRUGS (11)
  1. NEXIUM 24HR [Suspect]
     Active Substance: ESOMEPRAZOLE MAGNESIUM
     Indication: GASTROOESOPHAGEAL REFLUX DISEASE
     Route: 048
  2. TYLENOL [Concomitant]
     Active Substance: ACETAMINOPHEN
     Indication: PAIN
  3. MOTRIN [Concomitant]
     Active Substance: IBUPROFEN
     Indication: PAIN
  4. PREVACID [Suspect]
     Active Substance: LANSOPRAZOLE
     Route: 065
  5. CRESTOR [Concomitant]
     Active Substance: ROSUVASTATIN CALCIUM
     Indication: RENAL DISORDER
  6. TRAMADOL. [Concomitant]
     Active Substance: TRAMADOL
     Indication: SLEEP APNOEA SYNDROME
  7. PROTONIX [Suspect]
     Active Substance: PANTOPRAZOLE SODIUM
     Route: 065
     Dates: start: 2000
  8. NEXIUM [Suspect]
     Active Substance: ESOMEPRAZOLE MAGNESIUM
     Indication: GASTROOESOPHAGEAL REFLUX DISEASE
     Route: 048
     Dates: start: 2001
  9. PREVACID IV [Suspect]
     Active Substance: LANSOPRAZOLE
     Route: 065
  10. BENADRYL [Concomitant]
     Active Substance: DIPHENHYDRAMINE HYDROCHLORIDE
     Indication: MULTIPLE ALLERGIES
  11. LASIX [Concomitant]
     Active Substance: FUROSEMIDE
     Indication: RENAL IMPAIRMENT

REACTIONS (1)
  - Chronic kidney disease [Not Recovered/Not Resolved]

NARRATIVE: CASE EVENT DATE: 2010
